FAERS Safety Report 5270058-9 (Version None)
Quarter: 2007Q1

REPORT INFORMATION
  Report Type: 
  Country: None (occurrence: None)
  Receive Date: 20061215
  Receipt Date: 20060213
  Transmission Date: 20070707
  Serious: Yes (Other)
  Sender: FDA-Public Use
  Company Number: US-JNJFOC-20060203166

PATIENT
  Age: 13 Year
  Sex: Female
  Weight: 35.3806 kg

DRUGS (1)
  1. IBUPROFEN [Suspect]
     Indication: PYREXIA
     Dosage: 150 MG, 1 IN 1 TOTAL, ORAL
     Route: 048
     Dates: start: 20060129, end: 20060129

REACTIONS (5)
  - PRURITUS GENERALISED [None]
  - RASH GENERALISED [None]
  - SWELLING FACE [None]
  - SWOLLEN TONGUE [None]
  - URTICARIA [None]
